FAERS Safety Report 4315013-8 (Version None)
Quarter: 2004Q1

REPORT INFORMATION
  Report Type: 
  Country: None (occurrence: None)
  Receive Date: 20040309
  Receipt Date: 20040225
  Transmission Date: 20041129
  Serious: Yes (Other)
  Sender: FDA-Public Use
  Company Number: US-JNJFOC-20040206222

PATIENT
  Age: 22 Year
  Sex: Female
  Weight: 86.1834 kg

DRUGS (1)
  1. REMICADE [Suspect]
     Indication: PSORIATIC ARTHROPATHY
     Dosage: INTRAVENOUS
     Route: 042
     Dates: start: 20031208

REACTIONS (4)
  - BACK PAIN [None]
  - LUPUS-LIKE SYNDROME [None]
  - MYALGIA [None]
  - NECK PAIN [None]
